FAERS Safety Report 4534671-6 (Version None)
Quarter: 2004Q4

REPORT INFORMATION
  Report Type: 
  Country: None (occurrence: None)
  Receive Date: 20041214
  Receipt Date: 20041005
  Transmission Date: 20050328
  Serious: No
  Sender: FDA-Public Use
  Company Number: 2004238518US

PATIENT
  Sex: Female

DRUGS (1)
  1. BEXTRA [Suspect]
     Dosage: 10 MG, QD
     Dates: start: 20040101, end: 20040101

REACTIONS (3)
  - HEADACHE [None]
  - NECK PAIN [None]
  - ORAL MUCOSAL BLISTERING [None]
